FAERS Safety Report 6878470-9 (Version None)
Quarter: 2010Q3

REPORT INFORMATION
  Report Type: 
  Country: None (occurrence: None)
  Receive Date: 20100728
  Receipt Date: 20100722
  Transmission Date: 20110219
  Serious: Yes (Hospitalization)
  Sender: FDA-Public Use
  Company Number: US-MERCK-1007USA03050

PATIENT
  Age: 78 Year
  Sex: Female

DRUGS (4)
  1. FOSAMAX [Suspect]
     Indication: OSTEOPOROSIS
     Route: 048
     Dates: start: 19940101
  2. MIACALCIN [Concomitant]
     Route: 065
     Dates: start: 20020401, end: 20021201
  3. EVISTA [Concomitant]
     Route: 065
     Dates: start: 20021201, end: 20050701
  4. BONIVA [Interacting]
     Route: 065
     Dates: start: 20050701

REACTIONS (3)
  - DRUG INTERACTION [None]
  - FEMUR FRACTURE [None]
  - LOWER LIMB FRACTURE [None]
